FAERS Safety Report 8832373 (Version 3)
Quarter: 2013Q1

REPORT INFORMATION
  Report Type: Spontaneous
  Country: US (occurrence: US)
  Receive Date: 20121009
  Receipt Date: 20130206
  Transmission Date: 20140127
  Serious: Yes (Other)
  Sender: FDA-Public Use
  Company Number: US-ASTRAZENECA-2012SE70950

PATIENT
  Age: 50 Year
  Sex: Female
  Weight: 74.8 kg

DRUGS (8)
  1. SYMBICORT PMDI [Suspect]
     Indication: ASTHMA
     Dosage: TWO PUFFS TWICE A DAY
     Route: 055
     Dates: start: 2009
  2. SYMBICORT PMDI [Suspect]
     Indication: CHRONIC OBSTRUCTIVE PULMONARY DISEASE
     Dosage: TWO PUFFS TWICE A DAY
     Route: 055
     Dates: start: 2009
  3. ATENOLOL [Suspect]
     Indication: MITRAL VALVE PROLAPSE
     Route: 048
     Dates: start: 2008
  4. ALBUTEROL [Suspect]
     Route: 065
  5. BUSPAR [Concomitant]
     Indication: ANXIETY
     Route: 048
     Dates: start: 2008
  6. CLONAZEPAM [Concomitant]
     Indication: ANXIETY
     Route: 048
     Dates: start: 2008
  7. CYMBALTA [Concomitant]
     Indication: FIBROMYALGIA
     Route: 048
     Dates: start: 2010
  8. GABAPENTIN [Concomitant]
     Indication: FIBROMYALGIA
     Route: 048
     Dates: start: 2010

REACTIONS (10)
  - Deafness unilateral [Unknown]
  - Fall [Unknown]
  - Meniscus injury [Unknown]
  - Animal bite [Unknown]
  - Fibromyalgia [Unknown]
  - Osteoarthritis [Unknown]
  - Malaise [Unknown]
  - Heart rate increased [Unknown]
  - Intentional drug misuse [Unknown]
  - Drug dose omission [Unknown]
